FAERS Safety Report 9575308 (Version 1)
Quarter: 2013Q4

REPORT INFORMATION
  Report Type: Spontaneous
  Country: GB (occurrence: GB)
  Receive Date: 20131001
  Receipt Date: 20131001
  Transmission Date: 20140711
  Serious: Yes (Other)
  Sender: FDA-Public Use
  Company Number: PHHY2013GB106225

PATIENT
  Age: 71 Year
  Sex: Female

DRUGS (4)
  1. ALENDRONIC ACID [Suspect]
     Indication: OSTEOPOROSIS
     Route: 048
  2. OMEPRAZOLE [Concomitant]
  3. ADCAL [Concomitant]
  4. STRONTIUM RANELATE [Concomitant]

REACTIONS (3)
  - Oroantral fistula [Unknown]
  - Bone loss [Unknown]
  - Osteonecrosis of jaw [Not Recovered/Not Resolved]
